FAERS Safety Report 17960022 (Version 1)
Quarter: 2020Q2

REPORT INFORMATION
  Report Type: Spontaneous
  Country: US (occurrence: US)
  Receive Date: 20200629
  Receipt Date: 20200629
  Transmission Date: 20200714
  Serious: Yes (Other)
  Sender: FDA-Public Use
  Company Number: US-REGENERON PHARMACEUTICALS, INC.-2020-45439

PATIENT

DRUGS (6)
  1. EYLEA [Suspect]
     Active Substance: AFLIBERCEPT
     Dosage: Q8W, LEFT EYE
     Route: 031
     Dates: start: 202005, end: 202005
  2. TYLENOL [Concomitant]
     Active Substance: ACETAMINOPHEN
     Indication: PRODUCT USED FOR UNKNOWN INDICATION
  3. EYLEA [Suspect]
     Active Substance: AFLIBERCEPT
     Dosage: Q 4, 6 TO 8 WK, LEFT EYE
     Route: 031
     Dates: start: 2011
  4. EYLEA [Suspect]
     Active Substance: AFLIBERCEPT
     Dosage: Q6-8 WK, LEFT EYE
     Route: 031
     Dates: start: 202001, end: 202001
  5. EYLEA [Suspect]
     Active Substance: AFLIBERCEPT
     Dosage: Q6-8 WK, LEFT EYE
     Route: 031
     Dates: start: 202003, end: 202003
  6. TRAMADOL. [Concomitant]
     Active Substance: TRAMADOL
     Indication: PRODUCT USED FOR UNKNOWN INDICATION

REACTIONS (4)
  - Vitreous floaters [Not Recovered/Not Resolved]
  - Cardiac disorder [Unknown]
  - Intervertebral disc protrusion [Unknown]
  - Pain in extremity [Unknown]

NARRATIVE: CASE EVENT DATE: 2005
